FAERS Safety Report 22645437 (Version 1)
Quarter: 2023Q2

REPORT INFORMATION
  Report Type: Spontaneous
  Country: US (occurrence: None)
  Receive Date: 20230626
  Receipt Date: 20230626
  Transmission Date: 20230722
  Serious: No
  Sender: FDA-Public Use
  Company Number: None

PATIENT
  Age: 57 Year
  Sex: Male

DRUGS (1)
  1. EMTRICITABINE\TENOFOVIR [Suspect]
     Active Substance: EMTRICITABINE\TENOFOVIR
     Indication: Infection prophylaxis
     Dosage: 1 DF DOSAGE FORM DAILY ORAL
     Route: 048
     Dates: start: 20230113, end: 20230620

REACTIONS (2)
  - Headache [None]
  - Ill-defined disorder [None]

NARRATIVE: CASE EVENT DATE: 20230622
